FAERS Safety Report 4848891-4 (Version None)
Quarter: 2005Q4

REPORT INFORMATION
  Report Type: 
  Country: None (occurrence: None)
  Receive Date: 20051208
  Receipt Date: 20051205
  Transmission Date: 20060501
  Serious: Yes (Hospitalization)
  Sender: FDA-Public Use
  Company Number: GB-MERCK-0512GBR00021

PATIENT
  Age: 30 Year
  Sex: Female

DRUGS (4)
  1. VASOTEC [Suspect]
     Indication: HYPERTENSION
     Route: 048
     Dates: end: 20051101
  2. VASOTEC [Suspect]
     Route: 048
  3. AMLODIPINE MALEATE [Concomitant]
     Route: 048
  4. AMLODIPINE MALEATE [Concomitant]
     Route: 048

REACTIONS (3)
  - ODYNOPHAGIA [None]
  - PRURITUS [None]
  - RASH [None]
